FAERS Safety Report 4644057-1 (Version None)
Quarter: 2005Q2

REPORT INFORMATION
  Report Type: 
  Country: None (occurrence: None)
  Receive Date: 20050425
  Receipt Date: 20050329
  Transmission Date: 20051028
  Serious: Yes (Other)
  Sender: FDA-Public Use
  Company Number: JP-ROCHE-400668

PATIENT
  Age: 20 Year
  Sex: Female

DRUGS (8)
  1. TAMIFLU [Suspect]
     Indication: INFLUENZA
     Route: 048
     Dates: start: 20050322, end: 20050324
  2. CRAVIT [Suspect]
     Route: 048
     Dates: start: 20050321, end: 20050322
  3. UNSPECIFIED DRUG [Concomitant]
     Indication: DRUG USE FOR UNKNOWN INDICATION
     Dosage: DRUG NAME REPORTED AS ^SM^
     Route: 048
     Dates: start: 20050321, end: 20050322
  4. CALONAL [Concomitant]
     Indication: DRUG USE FOR UNKNOWN INDICATION
     Dosage: FIRST THERAPY- 21-21 MARCH 2005: 200MG PRN SECOND THERAPY- 22-24 MARCH 2005: 200MG THREE TIMES A DA+
     Route: 048
     Dates: start: 20050321, end: 20050324
  5. PRIMPERAN TAB [Concomitant]
     Indication: DRUG USE FOR UNKNOWN INDICATION
     Route: 048
     Dates: start: 20050321
  6. SP [Concomitant]
     Indication: DRUG USE FOR UNKNOWN INDICATION
     Dosage: DRUG FORM AND ROUTE REPORTED AS ^LOZENGE^ AND ^OROPHARYNGEAL^ FIRST THERAPY- 21-22 MARCH 2005- 0.25+
     Route: 050
     Dates: start: 20050321
  7. TRANSAMIN [Concomitant]
     Indication: DRUG USE FOR UNKNOWN INDICATION
     Route: 048
     Dates: start: 20050322, end: 20050324
  8. NAUZELIN [Concomitant]
     Indication: DRUG USE FOR UNKNOWN INDICATION
     Route: 048
     Dates: start: 20050322, end: 20050324

REACTIONS (3)
  - APHTHOUS STOMATITIS [None]
  - GINGIVAL BLEEDING [None]
  - STOMATITIS [None]
